FAERS Safety Report 10279602 (Version 2)
Quarter: 2014Q3

REPORT INFORMATION
  Report Type: Report from Study
  Country: PL (occurrence: PL)
  Receive Date: 20140707
  Receipt Date: 20140707
  Transmission Date: 20150326
  Serious: Yes (Hospitalization)
  Sender: FDA-Public Use
  Company Number: PHHO2009PL02686

PATIENT

DRUGS (3)
  1. ACTRAPID [Concomitant]
     Active Substance: INSULIN HUMAN
  2. INSULIN HUMAN INSULATARD [Concomitant]
  3. SOM230 [Suspect]
     Active Substance: PASIREOTIDE
     Indication: ACROMEGALY
     Dosage: 600 UG, BID
     Route: 058
     Dates: start: 20090209, end: 20090226

REACTIONS (1)
  - Diabetes mellitus [Recovered/Resolved with Sequelae]

NARRATIVE: CASE EVENT DATE: 20090223
